FAERS Safety Report 8235118-9 (Version None)
Quarter: 2012Q1

REPORT INFORMATION
  Report Type: 
  Country: None (occurrence: None)
  Receive Date: 20120326
  Receipt Date: 20120321
  Transmission Date: 20120608
  Serious: Yes (Other)
  Sender: FDA-Public Use
  Company Number: ES-MERCK-1106ESP00100

PATIENT
  Age: 49 Year
  Sex: Male
  Weight: 65 kg

DRUGS (3)
  1. ENOXAPARIN SODIUM [Suspect]
     Indication: DIVERTICULITIS
     Route: 058
     Dates: start: 20110513, end: 20110520
  2. INVANZ [Suspect]
     Indication: DIVERTICULITIS
     Route: 065
     Dates: start: 20110513, end: 20110520
  3. OMEPRAZOLE [Suspect]
     Indication: DIVERTICULITIS
     Route: 048
     Dates: start: 20110513, end: 20110520

REACTIONS (1)
  - TOXIC SKIN ERUPTION [None]
